FAERS Safety Report 7605330-8 (Version None)
Quarter: 2011Q3

REPORT INFORMATION
  Report Type: 
  Country: None (occurrence: None)
  Receive Date: 20110713
  Receipt Date: 20110705
  Transmission Date: 20111222
  Serious: Yes (Other)
  Sender: FDA-Public Use
  Company Number: US-ASTELLAS-2011US003636

PATIENT

DRUGS (5)
  1. PROGRAF [Suspect]
     Indication: BONE MARROW TRANSPLANT
     Dosage: 6 MG, BID
     Route: 048
     Dates: start: 20050719
  2. CALCIUM W/MAGNESIUM/VITAMIN D [Concomitant]
     Indication: BONE DISORDER
     Dosage: 600 MG, UID/QD
     Route: 048
     Dates: start: 20050719
  3. SINGULAIR [Concomitant]
     Indication: HYPERSENSITIVITY
     Dosage: 10 MG, UID/QD
     Route: 048
     Dates: start: 20050719
  4. LEVAQUIN [Concomitant]
     Indication: THYROID DISORDER
     Dosage: 175 MG, UID/QD
     Route: 048
     Dates: start: 20070101
  5. PLAVIX [Concomitant]
     Indication: ANTICOAGULANT THERAPY
     Dosage: 75 MG, UID/QD
     Route: 048

REACTIONS (3)
  - CHOLECYSTECTOMY [None]
  - PAIN [None]
  - OFF LABEL USE [None]
